FAERS Safety Report 5834735-0 (Version None)
Quarter: 2008Q3

REPORT INFORMATION
  Report Type: 
  Country: None (occurrence: None)
  Receive Date: 20080801
  Receipt Date: 20080724
  Transmission Date: 20090109
  Serious: Yes (Death)
  Sender: FDA-Public Use
  Company Number: 2008AL008856

PATIENT
  Age: 20 Year
  Sex: Male

DRUGS (2)
  1. FEVERALL [Suspect]
  2. NUROFEN [Concomitant]

REACTIONS (2)
  - ACCIDENTAL OVERDOSE [None]
  - HEPATIC FAILURE [None]
